FAERS Safety Report 4599560-X (Version None)
Quarter: 2005Q1

REPORT INFORMATION
  Report Type: 
  Country: None (occurrence: None)
  Receive Date: 20050307
  Receipt Date: 20050228
  Transmission Date: 20050727
  Serious: Yes (Hospitalization)
  Sender: FDA-Public Use
  Company Number: 200510532EU

PATIENT
  Age: 54 Year
  Sex: Male

DRUGS (6)
  1. RIFATER [Suspect]
     Indication: TUBERCULOSIS
     Route: 048
     Dates: start: 20041005, end: 20050105
  2. PYRIDOXINE HCL [Concomitant]
     Route: 048
  3. ALDACTONE [Concomitant]
     Indication: CIRRHOSIS ALCOHOLIC
     Route: 048
  4. MARCOUMAR [Concomitant]
     Route: 048
  5. STILNOX [Concomitant]
     Route: 048
  6. CREON [Concomitant]
     Indication: PANCREATIC DISORDER
     Route: 048

REACTIONS (5)
  - COLOUR BLINDNESS [None]
  - DRUG INEFFECTIVE [None]
  - DRUG LEVEL ABOVE THERAPEUTIC [None]
  - DRUG LEVEL BELOW THERAPEUTIC [None]
  - PHARMACEUTICAL PRODUCT COMPLAINT [None]
